FAERS Safety Report 7810308-5 (Version None)
Quarter: 2011Q4

REPORT INFORMATION
  Report Type: 
  Country: None (occurrence: None)
  Receive Date: 20111012
  Receipt Date: 20111007
  Transmission Date: 20120403
  Serious: Yes (Hospitalization)
  Sender: FDA-Public Use
  Company Number: US-AMGEN-USASP2011052208

PATIENT
  Sex: Male

DRUGS (2)
  1. NPLATE [Suspect]
     Indication: MYELODYSPLASTIC SYNDROME
     Dosage: UNK
     Dates: start: 20110613
  2. AZACITIDINE [Concomitant]
     Indication: MYELODYSPLASTIC SYNDROME

REACTIONS (2)
  - OSTEOMYELITIS [None]
  - PLATELET COUNT DECREASED [None]
